FAERS Safety Report 7585436-2 (Version None)
Quarter: 2011Q3

REPORT INFORMATION
  Report Type: 
  Country: None (occurrence: None)
  Receive Date: 20110701
  Receipt Date: 20110624
  Transmission Date: 20111222
  Serious: Yes (Hospitalization, Other)
  Sender: FDA-Public Use
  Company Number: US-BAYER-200934546NA

PATIENT
  Age: 26 Year
  Sex: Female
  Weight: 59 kg

DRUGS (3)
  1. YASMIN [Suspect]
     Indication: PRODUCT USED FOR UNKNOWN INDICATION
     Route: 048
     Dates: start: 20050201, end: 20061101
  2. ZITHROMAX [Concomitant]
  3. ASPIRIN [Concomitant]

REACTIONS (15)
  - PNEUMONIA [None]
  - ANXIETY [None]
  - FLANK PAIN [None]
  - CHILLS [None]
  - PAIN [None]
  - COUGH [None]
  - PLEURITIC PAIN [None]
  - CHEST PAIN [None]
  - PULMONARY ARTERY THROMBOSIS [None]
  - NASOPHARYNGITIS [None]
  - OROPHARYNGEAL PAIN [None]
  - NAUSEA [None]
  - PULMONARY EMBOLISM [None]
  - PYREXIA [None]
  - DYSPNOEA [None]
